FAERS Safety Report 4585400-1 (Version None)
Quarter: 2005Q1

REPORT INFORMATION
  Report Type: 
  Country: None (occurrence: None)
  Receive Date: 20050214
  Receipt Date: 20041027
  Transmission Date: 20050727
  Serious: Yes (Hospitalization)
  Sender: FDA-Public Use
  Company Number: 05-032

PATIENT
  Age: 59 Year
  Sex: Female

DRUGS (13)
  1. DEXAMETHASONE [Suspect]
     Indication: DISEASE RECURRENCE
  2. DEXAMETHASONE [Suspect]
     Indication: MULTIPLE MYELOMA
  3. CONJUGATED ESTROGENS [Concomitant]
  4. DOCUSATE SODIUM [Concomitant]
  5. GABAPENTIN [Concomitant]
  6. IBUPROFEN [Concomitant]
  7. METOPROLOL [Concomitant]
  8. MORPHINE SULFATE [Concomitant]
  9. MULTI-VITAMIN [Concomitant]
  10. OMEPRAZOLE [Concomitant]
  11. PAMIDRONATE DISODIUM [Concomitant]
  12. SERTRALINE HCL [Concomitant]
  13. GENASENSE [Concomitant]

REACTIONS (4)
  - BACK PAIN [None]
  - CONDITION AGGRAVATED [None]
  - SPINAL COMPRESSION FRACTURE [None]
  - THORACIC VERTEBRAL FRACTURE [None]
